FAERS Safety Report 25100838 (Version 1)
Quarter: 2025Q1

REPORT INFORMATION
  Report Type: Spontaneous
  Country: US (occurrence: US)
  Receive Date: 20250320
  Receipt Date: 20250320
  Transmission Date: 20250408
  Serious: No
  Sender: BAUSCH AND LOMB
  Company Number: US-BAUSCHBL-2025BNL004387

PATIENT
  Age: 75 Year
  Sex: Female

DRUGS (1)
  1. XIIDRA [Suspect]
     Active Substance: LIFITEGRAST
     Indication: Dry eye
     Route: 047

REACTIONS (6)
  - Dysgeusia [Unknown]
  - Burning sensation [Unknown]
  - Product packaging quantity issue [Unknown]
  - Product use complaint [Unknown]
  - Product after taste [Unknown]
  - Product container issue [Unknown]
